FAERS Safety Report 17354716 (Version 2)
Quarter: 2020Q3

REPORT INFORMATION
  Report Type: Spontaneous
  Country: US (occurrence: US)
  Receive Date: 20200131
  Receipt Date: 20200807
  Transmission Date: 20201102
  Serious: Yes (Death, Disabling, Other)
  Sender: FDA-Public Use
  Company Number: US-SA-2020SA021814

PATIENT

DRUGS (1)
  1. DIMETICONE [Suspect]
     Active Substance: DIMETHICONE

REACTIONS (13)
  - Exposure to chemical pollution [Fatal]
  - Coronary artery disease [Fatal]
  - Pulmonary haemorrhage [Fatal]
  - Myotonic dystrophy [Fatal]
  - Chronic obstructive pulmonary disease [Fatal]
  - Hypertension [Fatal]
  - Occupational exposure to product [Fatal]
  - Anxiety [Fatal]
  - Sleep apnoea syndrome [Fatal]
  - Pain [Fatal]
  - Squamous cell carcinoma of lung [Fatal]
  - Loss of personal independence in daily activities [Fatal]
  - Hyperlipidaemia [Fatal]

NARRATIVE: CASE EVENT DATE: 20190702
